APPROVED DRUG PRODUCT: AMIODARONE HYDROCHLORIDE
Active Ingredient: AMIODARONE HYDROCHLORIDE
Strength: 200MG
Dosage Form/Route: TABLET;ORAL
Application: A213446 | Product #001 | TE Code: AB
Applicant: UNICHEM LABORATORIES LTD
Approved: Jul 21, 2020 | RLD: No | RS: No | Type: RX